FAERS Safety Report 10168605 (Version 1)
Quarter: 2014Q2

REPORT INFORMATION
  Report Type: Spontaneous
  Country: US (occurrence: US)
  Receive Date: 20140513
  Receipt Date: 20140513
  Transmission Date: 20141212
  Serious: No
  Sender: FDA-Public Use
  Company Number: US-BIOGENIDEC-2014BI043842

PATIENT
  Sex: Female

DRUGS (3)
  1. AVONEX [Suspect]
     Indication: MULTIPLE SCLEROSIS
     Route: 030
     Dates: start: 20070613
  2. COPAXONE [Concomitant]
  3. BETASERONE [Concomitant]

REACTIONS (4)
  - Memory impairment [Unknown]
  - Quality of life decreased [Unknown]
  - Back disorder [Not Recovered/Not Resolved]
  - Malaise [Unknown]
